FAERS Safety Report 8347505-9 (Version None)
Quarter: 2012Q2

REPORT INFORMATION
  Report Type: 
  Country: None (occurrence: None)
  Receive Date: 20120509
  Receipt Date: 20120430
  Transmission Date: 20120825
  Serious: Yes (Congenital Anomaly, Other)
  Sender: FDA-Public Use
  Company Number: DE-TEVA-335904GER

PATIENT
  Age: 0 Year
  Sex: Male

DRUGS (9)
  1. MELPERONE [Suspect]
     Route: 064
  2. HALDOL [Concomitant]
     Route: 064
  3. MORPHINE [Suspect]
     Route: 064
  4. HYDROXYUREA [Suspect]
     Route: 064
  5. FOLIC ACID [Concomitant]
     Route: 064
  6. ANTACIDA [Concomitant]
     Route: 064
  7. OMEPRAZOLE [Concomitant]
     Route: 064
  8. MEPERIDINE HCL [Suspect]
     Route: 064
  9. VALDOXAN [Suspect]
     Route: 064

REACTIONS (2)
  - DRUG WITHDRAWAL SYNDROME NEONATAL [None]
  - OESOPHAGEAL ATRESIA [None]
